FAERS Safety Report 5047174-X (Version None)
Quarter: 2006Q3

REPORT INFORMATION
  Report Type: 
  Country: None (occurrence: None)
  Receive Date: 20060703
  Receipt Date: 20060622
  Transmission Date: 20061208
  Serious: Yes (Hospitalization)
  Sender: FDA-Public Use
  Company Number: T200600699

PATIENT
  Age: 47 Year
  Sex: Female

DRUGS (8)
  1. FLUOXETINE CAPSULES (FLUOXETINE) CAPSULE, 10MG [Suspect]
     Dosage: 10 MG
  2. AMITRIPTYLINE)AMITRIPTYLINE) 50MG [Suspect]
     Dosage: 50 MG
  3. LORAZEPAM(LORAZEPAM) 0.5MG [Suspect]
     Dosage: 0.5 MG
  4. OLANZAPINE(OLANZAPINE) 10 MG [Suspect]
     Dosage: 10 MG
  5. VENLAFAXINE HCL [Concomitant]
  6. METOPROLOL (METOPROLOL) SOLUTION [Concomitant]
  7. HYDROCODONE BITARTRATE/APAP (HYDROCODONE BITARTRATE, ACETAMINOPHEN TAB [Concomitant]
  8. PANTOPRAZOLE SODIUM [Concomitant]

REACTIONS (12)
  - ALANINE AMINOTRANSFERASE INCREASED [None]
  - AREFLEXIA [None]
  - ASPARTATE AMINOTRANSFERASE INCREASED [None]
  - BLOOD CREATINE PHOSPHOKINASE INCREASED [None]
  - BRADYCARDIA [None]
  - ELECTROCARDIOGRAM QRS COMPLEX SHORTENED [None]
  - HYPOTENSION [None]
  - ISCHAEMIC HEPATITIS [None]
  - LOSS OF CONSCIOUSNESS [None]
  - PCO2 INCREASED [None]
  - PO2 INCREASED [None]
  - RHABDOMYOLYSIS [None]
